FAERS Safety Report 10192313 (Version 2)
Quarter: 2014Q2

REPORT INFORMATION
  Report Type: Spontaneous
  Country: CH (occurrence: CH)
  Receive Date: 20140523
  Receipt Date: 20140527
  Transmission Date: 20141212
  Serious: Yes (Other)
  Sender: FDA-Public Use
  Company Number: CH-BAYER-2014-069082

PATIENT
  Age: 28 Year
  Sex: Female

DRUGS (3)
  1. CIPROXIN [Suspect]
     Indication: COUGH
     Dosage: 1 G, BID
     Route: 064
     Dates: start: 20131211, end: 20131214
  2. CIPROXIN [Suspect]
     Indication: COUGH
     Dosage: 1 MG, BID
     Route: 064
     Dates: start: 20131215, end: 20131218
  3. AUGMENTIN [Suspect]
     Indication: COUGH
     Dosage: 625 MG, BID
     Route: 064
     Dates: start: 20131205, end: 20131209

REACTIONS (2)
  - Abortion spontaneous [Recovered/Resolved]
  - Exposure during pregnancy [Recovered/Resolved]
